FAERS Safety Report 9801882 (Version 1)
Quarter: 2014Q1

REPORT INFORMATION
  Report Type: Spontaneous
  Country: US (occurrence: US)
  Receive Date: 20140107
  Receipt Date: 20140107
  Transmission Date: 20141002
  Serious: No
  Sender: FDA-Public Use
  Company Number: US-ALLERGAN-1216692US

PATIENT
  Age: 28 Year
  Sex: Male

DRUGS (2)
  1. ACZONE [Suspect]
     Indication: ACNE
     Dosage: UNK, BID
     Route: 061
     Dates: start: 201203, end: 201204
  2. PROPECIA [Concomitant]
     Indication: ALOPECIA
     Dosage: UNK UNK, QD
     Route: 061

REACTIONS (1)
  - Hypoacusis [Recovering/Resolving]
